FAERS Safety Report 19220324 (Version 3)
Quarter: 2021Q2

REPORT INFORMATION
  Report Type: Spontaneous
  Country: US (occurrence: US)
  Receive Date: 20210506
  Receipt Date: 20210610
  Transmission Date: 20210717
  Serious: Yes (Hospitalization, Other)
  Sender: FDA-Public Use
  Company Number: US-CELLTRION INC.-2021US005787

PATIENT

DRUGS (1)
  1. INFLECTRA [Suspect]
     Active Substance: INFLIXIMAB-DYYB
     Indication: CROHN^S DISEASE
     Dosage: 5 MG/KG, EVERY 6 WEEKS
     Route: 042
     Dates: start: 20190812, end: 20210413

REACTIONS (5)
  - Weight increased [Unknown]
  - Off label use [Unknown]
  - Inflammation [Unknown]
  - Henoch-Schonlein purpura [Recovering/Resolving]
  - IgA nephropathy [Recovered/Resolved with Sequelae]

NARRATIVE: CASE EVENT DATE: 20210121
